FAERS Safety Report 22649672 (Version 1)
Quarter: 2023Q2

REPORT INFORMATION
  Report Type: Spontaneous
  Country: US (occurrence: US)
  Receive Date: 20230628
  Receipt Date: 20230628
  Transmission Date: 20230721
  Serious: No
  Sender: FDA-Public Use
  Company Number: US-CSLP-04911954285-V11263691-220

PATIENT
  Age: 33 Year
  Sex: Male

DRUGS (1)
  1. ANTICOAGULANT SODIUM CITRATE [Suspect]
     Active Substance: SODIUM CITRATE
     Indication: Anticoagulant therapy
     Dosage: INFUSION, UNKNOWN AMOUNT
     Dates: start: 20230514, end: 20230514

REACTIONS (13)
  - Drooling [Recovering/Resolving]
  - Tetany [Recovering/Resolving]
  - Cold sweat [Recovering/Resolving]
  - Nausea [Recovered/Resolved]
  - Vomiting [Recovering/Resolving]
  - Dyskinesia [Recovering/Resolving]
  - Hyperhidrosis [Recovering/Resolving]
  - Muscle contracture [Recovering/Resolving]
  - Muscle twitching [Recovering/Resolving]
  - Eye movement disorder [Recovering/Resolving]
  - Device inversion [Recovered/Resolved]
  - Wrong technique in device usage process [Recovered/Resolved]
  - Incorrect route of product administration [Recovered/Resolved]

NARRATIVE: CASE EVENT DATE: 20230514
